FAERS Safety Report 4782276-4 (Version None)
Quarter: 2005Q3

REPORT INFORMATION
  Report Type: 
  Country: None (occurrence: None)
  Receive Date: 20050929
  Receipt Date: 20050922
  Transmission Date: 20060218
  Serious: Yes (Hospitalization, Other)
  Sender: FDA-Public Use
  Company Number: GB-BOEHRINGER INGELHEIM PHARMACEUTICALS, INC.-2005-UK-01825UK

PATIENT
  Sex: Male

DRUGS (2)
  1. NEVIRAPINE [Suspect]
     Route: 048
     Dates: start: 20041001, end: 20041001
  2. COMBIVIR [Concomitant]
     Dosage: 300/150MG BD
     Route: 065
     Dates: start: 20041001

REACTIONS (6)
  - CHILLS [None]
  - DIARRHOEA [None]
  - FATIGUE [None]
  - MALAISE [None]
  - PYREXIA [None]
  - RASH MACULO-PAPULAR [None]
